FAERS Safety Report 5408547-6 (Version None)
Quarter: 2007Q3

REPORT INFORMATION
  Report Type: 
  Country: None (occurrence: None)
  Receive Date: 20070808
  Receipt Date: 20070731
  Transmission Date: 20080115
  Serious: Yes (Hospitalization)
  Sender: FDA-Public Use
  Company Number: US-AVENTIS-200717153GDDC

PATIENT
  Age: 31 Year
  Sex: Female

DRUGS (1)
  1. FLUOROURACIL [Suspect]
     Dosage: DOSE: 225 MG/M2/ FIVE DAYS A WEEK FOR 6 WEEKS
     Route: 042

REACTIONS (1)
  - CARDIAC FAILURE ACUTE [None]
